FAERS Safety Report 5782386-9 (Version None)
Quarter: 2008Q2

REPORT INFORMATION
  Report Type: 
  Country: None (occurrence: None)
  Receive Date: 20080623
  Receipt Date: 20071109
  Transmission Date: 20081010
  Serious: No
  Sender: FDA-Public Use
  Company Number: US-AMGEN-KDL251861

PATIENT
  Sex: Male

DRUGS (6)
  1. ARANESP [Suspect]
     Indication: ANAEMIA
     Dates: start: 20070901
  2. GLIPIZIDE [Concomitant]
  3. METFORMIN [Concomitant]
  4. LISINOPRIL [Concomitant]
  5. NIFEDIPINE [Concomitant]
  6. METHADONE HCL [Concomitant]

REACTIONS (9)
  - BLISTER [None]
  - BLOOD GLUCOSE ABNORMAL [None]
  - BLOOD PRESSURE INCREASED [None]
  - CONTUSION [None]
  - HAEMORRHAGE [None]
  - MALAISE [None]
  - PRURITUS [None]
  - RASH MORBILLIFORM [None]
  - VISUAL ACUITY REDUCED [None]
